FAERS Safety Report 23033655 (Version 1)
Quarter: 2023Q4

REPORT INFORMATION
  Report Type: Spontaneous
  Country: US (occurrence: US)
  Receive Date: 20231005
  Receipt Date: 20231005
  Transmission Date: 20240110
  Serious: No
  Sender: FDA-Public Use
  Company Number: US-AMGEN-USASP2023175913

PATIENT
  Age: 39 Year
  Sex: Female

DRUGS (1)
  1. REPATHA [Suspect]
     Active Substance: EVOLOCUMAB
     Indication: Product used for unknown indication
     Dosage: UNK, Q2WK
     Route: 065
     Dates: start: 20221101, end: 20230501

REACTIONS (4)
  - Liver function test increased [Unknown]
  - Glomerular filtration rate abnormal [Unknown]
  - Blood cholesterol increased [Recovering/Resolving]
  - Low density lipoprotein increased [Recovering/Resolving]

NARRATIVE: CASE EVENT DATE: 20230101
